FAERS Safety Report 5429337-4 (Version None)
Quarter: 2007Q3

REPORT INFORMATION
  Report Type: 
  Country: None (occurrence: None)
  Receive Date: 20070827
  Receipt Date: 20070827
  Transmission Date: 20080115
  Serious: Yes (Life-Threatening, Disabling, Other)
  Sender: FDA-Public Use
  Company Number: None

PATIENT
  Sex: Female
  Weight: 58.0604 kg

DRUGS (1)
  1. PROPOFOL [Suspect]

REACTIONS (27)
  - AGGRESSION [None]
  - AGITATION [None]
  - ANAPHYLACTIC REACTION [None]
  - APNOEA [None]
  - ASTHENIA [None]
  - CEREBROVASCULAR ACCIDENT [None]
  - CHILLS [None]
  - CLUBBING [None]
  - CONFUSIONAL STATE [None]
  - DIZZINESS [None]
  - DYSPHAGIA [None]
  - FEEDING DISORDER [None]
  - GAIT DISTURBANCE [None]
  - HAEMORRHAGE [None]
  - HALLUCINATION [None]
  - HYPOTENSION [None]
  - INSOMNIA [None]
  - MOANING [None]
  - MUSCLE TWITCHING [None]
  - MYALGIA [None]
  - NEUROPATHY [None]
  - OPISTHOTONUS [None]
  - PYREXIA [None]
  - RESPIRATORY DISORDER [None]
  - TACHYCARDIA [None]
  - TREMOR [None]
  - VENTRICULAR EXTRASYSTOLES [None]
